FAERS Safety Report 11012650 (Version 1)
Quarter: 2015Q2

REPORT INFORMATION
  Report Type: Spontaneous
  Country: US (occurrence: None)
  Receive Date: 20150409
  Receipt Date: 20150409
  Transmission Date: 20150821
  Serious: Yes (Death)
  Sender: FDA-Public Use
  Company Number: 2015030059

PATIENT
  Age: 31 Year
  Sex: Male
  Weight: 79 kg

DRUGS (5)
  1. ALPRAZOLAM (ALPRAZOLAM) [Suspect]
     Active Substance: ALPRAZOLAM
  2. AMPHETAMINE (AMPHETAMINE) [Suspect]
     Active Substance: AMPHETAMINE
  3. ASENAPINE [Suspect]
     Active Substance: ASENAPINE
  4. 7-AMINOCLONAZEPAM [Suspect]
     Active Substance: CLONAZEPAM
  5. FENTANYL (FENTANYL) [Suspect]
     Active Substance: FENTANYL

REACTIONS (5)
  - Pulmonary oedema [None]
  - Unresponsive to stimuli [None]
  - Toxicity to various agents [None]
  - Pulmonary congestion [None]
  - Accidental death [None]
